FAERS Safety Report 5239714-2 (Version None)
Quarter: 2007Q1

REPORT INFORMATION
  Report Type: 
  Country: None (occurrence: None)
  Receive Date: 20070214
  Receipt Date: 20070214
  Transmission Date: 20070707
  Serious: No
  Sender: FDA-Public Use
  Company Number: None

PATIENT
  Sex: Male
  Weight: 72.4 kg

DRUGS (2)
  1. TAXOTERE [Suspect]
     Indication: THYMOMA MALIGNANT
     Dosage: 60MG  QWEEK  IV DRIP
     Route: 041
     Dates: start: 20070111, end: 20070208
  2. CARBOPLATIN [Suspect]
     Indication: THYMOMA MALIGNANT
     Dosage: 200MG  QWEEK  IV DRIP
     Route: 041
     Dates: start: 20070111, end: 20070208

REACTIONS (4)
  - BLISTER [None]
  - ERYTHEMA [None]
  - HYPERAESTHESIA [None]
  - PALMAR-PLANTAR ERYTHRODYSAESTHESIA SYNDROME [None]
